FAERS Safety Report 13899514 (Version 1)
Quarter: 2017Q3

REPORT INFORMATION
  Report Type: Spontaneous
  Country: US (occurrence: US)
  Receive Date: 20170823
  Receipt Date: 20170823
  Transmission Date: 20171127
  Serious: No
  Sender: FDA-Public Use
  Company Number: None

PATIENT
  Age: 9 Year
  Sex: Female
  Weight: 24.75 kg

DRUGS (1)
  1. GEODON [Suspect]
     Active Substance: ZIPRASIDONE HYDROCHLORIDE\ZIPRASIDONE MESYLATE
     Dosage: OTHER FREQUENCY:BID WITH MEALS;?
     Route: 048
     Dates: start: 20170623, end: 20170623

REACTIONS (3)
  - Dyskinesia [None]
  - Musculoskeletal stiffness [None]
  - Tremor [None]

NARRATIVE: CASE EVENT DATE: 20170624
